FAERS Safety Report 10178847 (Version 1)
Quarter: 2014Q2

REPORT INFORMATION
  Report Type: Spontaneous
  Country: US (occurrence: None)
  Receive Date: 20140516
  Receipt Date: 20140516
  Transmission Date: 20141212
  Serious: Yes (Other)
  Sender: FDA-Public Use
  Company Number: None

PATIENT
  Age: 52 Year
  Sex: Female
  Weight: 78.93 kg

DRUGS (4)
  1. FAMVIR [Suspect]
     Indication: HERPES ZOSTER
     Dosage: # 21  EVERY 8 HRS
     Route: 048
     Dates: start: 20140417, end: 20140419
  2. ZANTAC [Concomitant]
  3. ALBUTEROL SULFATE [Concomitant]
  4. BENADRYL [Concomitant]

REACTIONS (1)
  - Throat irritation [None]
